FAERS Safety Report 8584701 (Version 3)
Quarter: 2013Q1

REPORT INFORMATION
  Report Type: Other
  Country: FR (occurrence: FR)
  Receive Date: 20120529
  Receipt Date: 20130212
  Transmission Date: 20140127
  Serious: Yes (Hospitalization, Other)
  Sender: FDA-Public Use
  Company Number: FR-FRI-1000030663

PATIENT
  Age: 44 Year
  Sex: Male

DRUGS (8)
  1. NEBIVOLOL [Suspect]
     Dosage: 5 MG
     Route: 048
     Dates: start: 200807
  2. NEBIVOLOL [Suspect]
     Dosage: 7.5 MG
     Route: 048
     Dates: start: 2011, end: 2012
  3. NEBIVOLOL [Suspect]
     Dosage: 2.5 MG  QAM + 1.25 MG QPM
  4. PAROXETINE [Suspect]
     Dosage: 40 MG
     Dates: start: 2006
  5. METHADONE [Concomitant]
     Indication: DRUG DEPENDENCE
     Dosage: 160 MG
     Dates: start: 2001
  6. METHADONE [Concomitant]
     Dosage: 250 MG
  7. METHADONE [Concomitant]
     Dosage: 200 MG
  8. DIAZEPAM [Concomitant]
     Indication: DRUG DEPENDENCE
     Dosage: 20-30 MG DAILY
     Dates: start: 2004

REACTIONS (3)
  - Bradycardia [Unknown]
  - Ventricular tachycardia [Unknown]
  - Drug intolerance [Unknown]
